FAERS Safety Report 12476289 (Version 1)
Quarter: 2016Q2

REPORT INFORMATION
  Report Type: Spontaneous
  Country: JP (occurrence: JP)
  Receive Date: 20160617
  Receipt Date: 20160617
  Transmission Date: 20160815
  Serious: Yes (Death, Other)
  Sender: FDA-Public Use
  Company Number: PHJP1996JP003229

PATIENT
  Age: 46 Year
  Sex: Male

DRUGS (9)
  1. SANDIMMUN [Suspect]
     Active Substance: CYCLOSPORINE
     Dosage: 50 MG, QD
     Route: 065
     Dates: start: 19940509, end: 19940509
  2. SANDIMMUN [Suspect]
     Active Substance: CYCLOSPORINE
     Indication: BONE MARROW TRANSPLANT
     Dosage: 250 MG, QD
     Route: 065
     Dates: start: 19940421, end: 19940424
  3. SANDIMMUN [Suspect]
     Active Substance: CYCLOSPORINE
     Dosage: 100 MG, QD
     Route: 065
     Dates: start: 19940603, end: 19940603
  4. SANDIMMUN [Suspect]
     Active Substance: CYCLOSPORINE
     Dosage: 150 MG, QD
     Route: 065
     Dates: start: 19940601, end: 19940601
  5. SANDIMMUN [Suspect]
     Active Substance: CYCLOSPORINE
     Dosage: 150 MG, QD
     Route: 065
     Dates: start: 19940425, end: 19940503
  6. SANDIMMUN [Suspect]
     Active Substance: CYCLOSPORINE
     Dosage: 150 MG, QD
     Route: 065
     Dates: start: 19940530, end: 19940530
  7. SANDIMMUN [Suspect]
     Active Substance: CYCLOSPORINE
     Dosage: 150 MG, QD
     Route: 065
     Dates: start: 19940604, end: 19940604
  8. SANDIMMUN [Suspect]
     Active Substance: CYCLOSPORINE
     Dosage: 50 MG, QD
     Route: 065
     Dates: start: 19940602, end: 19940602
  9. METHYLPREDNISOLONE. [Concomitant]
     Active Substance: METHYLPREDNISOLONE
     Indication: PRODUCT USED FOR UNKNOWN INDICATION
     Route: 065

REACTIONS (3)
  - Encephalopathy [Recovered/Resolved]
  - Thrombotic thrombocytopenic purpura [Not Recovered/Not Resolved]
  - Acute graft versus host disease [Fatal]

NARRATIVE: CASE EVENT DATE: 19940503
